FAERS Safety Report 19718517 (Version 1)
Quarter: 2021Q3

REPORT INFORMATION
  Report Type: Spontaneous
  Country: US (occurrence: US)
  Receive Date: 20210818
  Receipt Date: 20210818
  Transmission Date: 20211014
  Serious: No
  Sender: FDA-Public Use
  Company Number: US-GW PHARMA-202108USGW03989

PATIENT

DRUGS (1)
  1. EPIDIOLEX [Suspect]
     Active Substance: CANNABIDIOL
     Indication: LENNOX-GASTAUT SYNDROME
     Dosage: 34.51 MG/KG/DAY, 600 MILLIGRAM, TID
     Route: 048

REACTIONS (3)
  - Prescribed overdose [Unknown]
  - Sleep disorder [Unknown]
  - Off label use [Unknown]
